FAERS Safety Report 24406615 (Version 1)
Quarter: 2024Q4

REPORT INFORMATION
  Report Type: Spontaneous
  Country: US (occurrence: US)
  Receive Date: 20241007
  Receipt Date: 20241007
  Transmission Date: 20250114
  Serious: Yes (Other)
  Sender: TORRENT
  Company Number: US-TORRENT-00013775

PATIENT
  Age: 73 Year
  Sex: Male

DRUGS (1)
  1. MOXIFLOXACIN [Suspect]
     Active Substance: MOXIFLOXACIN
     Indication: Nocardiosis
     Dosage: UNKNOWN
     Route: 048

REACTIONS (3)
  - Atrial fibrillation [Unknown]
  - Nocardiosis [Recovering/Resolving]
  - Condition aggravated [Unknown]
